FAERS Safety Report 24435250 (Version 1)
Quarter: 2024Q4

REPORT INFORMATION
  Report Type: Report from Study
  Country: US (occurrence: US)
  Receive Date: 20241015
  Receipt Date: 20241015
  Transmission Date: 20250115
  Serious: Yes (Other)
  Sender: ABBVIE
  Company Number: US-ABBVIE-5959339

PATIENT
  Age: 45 Year
  Sex: Female

DRUGS (2)
  1. SKYRIZI [Suspect]
     Active Substance: RISANKIZUMAB-RZAA
     Indication: Psoriasis
     Dosage: WEEK 0?FORM STRENGTH 150MG/ML
     Route: 058
     Dates: start: 202408, end: 202408
  2. SKYRIZI [Suspect]
     Active Substance: RISANKIZUMAB-RZAA
     Dosage: WEEK 4 DOSE?FIRST ADMIN DATE: 2024, FORM STRENGTH 150MG/ML?THEN EVERY 12 WEEKS THEREAFTER
     Route: 058

REACTIONS (1)
  - Breast reconstruction [Unknown]

NARRATIVE: CASE EVENT DATE: 20241003
